FAERS Safety Report 11729772 (Version 1)
Quarter: 2015Q4

REPORT INFORMATION
  Report Type: Spontaneous
  Country: US (occurrence: US)
  Receive Date: 20151110
  Receipt Date: 20151110
  Transmission Date: 20160304
  Serious: No
  Sender: FDA-Public Use
  Company Number: US-ELI_LILLY_AND_COMPANY-US201201003081

PATIENT
  Sex: Female

DRUGS (1)
  1. FORTEO [Suspect]
     Active Substance: TERIPARATIDE
     Indication: OSTEOPOROSIS
     Dosage: UNK, QD
     Route: 065

REACTIONS (7)
  - Arthralgia [Unknown]
  - Hypoaesthesia [Unknown]
  - Pain [Unknown]
  - Dysstasia [Unknown]
  - Muscle spasms [Unknown]
  - Fatigue [Unknown]
  - Fibromyalgia [Unknown]
